FAERS Safety Report 22198038 (Version 1)
Quarter: 2023Q2

REPORT INFORMATION
  Report Type: Spontaneous
  Country: US (occurrence: None)
  Receive Date: 20230411
  Receipt Date: 20230411
  Transmission Date: 20230722
  Serious: No
  Sender: FDA-Public Use
  Company Number: 2023A066884

PATIENT
  Sex: Female
  Weight: 79.4 kg

DRUGS (1)
  1. TAGRISSO [Suspect]
     Active Substance: OSIMERTINIB
     Indication: Small cell lung cancer
     Route: 048
     Dates: start: 202208

REACTIONS (5)
  - Skin exfoliation [Unknown]
  - Thirst [Unknown]
  - Dry skin [Unknown]
  - Hangnail [Unknown]
  - Off label use [Unknown]
